FAERS Safety Report 4999365-1 (Version None)
Quarter: 2006Q2

REPORT INFORMATION
  Report Type: 
  Country: None (occurrence: None)
  Receive Date: 20060509
  Receipt Date: 20060509
  Transmission Date: 20061013
  Serious: Yes (Hospitalization)
  Sender: FDA-Public Use
  Company Number: None

PATIENT
  Sex: Female

DRUGS (16)
  1. WARFARIN [Suspect]
     Indication: ANTICOAGULANT THERAPY
     Dosage: 5 MG  PO  DAILY
     Route: 048
  2. WARFARIN [Suspect]
     Indication: ATRIAL FIBRILLATION
     Dosage: 5 MG  PO  DAILY
     Route: 048
  3. ALBUTEROL SULFATE AUTOHALER [Concomitant]
  4. ASPIRIN [Concomitant]
  5. CALCIUM GLUCONATE [Concomitant]
  6. CELEBREX [Concomitant]
  7. DIPHENHYDRAMINE HCL [Concomitant]
  8. DOCUSATE [Concomitant]
  9. ENALAPRIL MALEATE [Concomitant]
  10. FENTANYL [Concomitant]
  11. INSULIN [Concomitant]
  12. LOVASTATIN [Concomitant]
  13. METOPROLOL TARTRATE [Concomitant]
  14. RENAL TAB [Concomitant]
  15. RHINOCORT [Concomitant]
  16. SENNA [Concomitant]

REACTIONS (1)
  - RECTAL HAEMORRHAGE [None]
